FAERS Safety Report 4947715-4 (Version None)
Quarter: 2006Q1

REPORT INFORMATION
  Report Type: 
  Country: None (occurrence: None)
  Receive Date: 20060320
  Receipt Date: 20060313
  Transmission Date: 20060701
  Serious: Yes (Hospitalization)
  Sender: FDA-Public Use
  Company Number: US-KINGPHARMUSA00001-K200600340

PATIENT
  Sex: Male

DRUGS (5)
  1. SEPTRA [Suspect]
     Route: 048
  2. RAPAMUNE [Concomitant]
  3. CELLCEPT [Concomitant]
  4. CARVEDILOL [Concomitant]
  5. AMLODIPINE [Concomitant]

REACTIONS (2)
  - ERYTHEMA NODOSUM [None]
  - PYREXIA [None]
